FAERS Safety Report 6424444-1 (Version None)
Quarter: 2009Q4

REPORT INFORMATION
  Report Type: 
  Country: None (occurrence: None)
  Receive Date: 20091029
  Receipt Date: 20091019
  Transmission Date: 20100525
  Serious: Yes (Other)
  Sender: FDA-Public Use
  Company Number: 2009AL006735

PATIENT
  Sex: Female

DRUGS (1)
  1. FEVERALL [Suspect]
     Dosage: 1000 MG; UNKNOWN; PO
     Route: 048
     Dates: start: 20090925, end: 20090925

REACTIONS (3)
  - PARAESTHESIA ORAL [None]
  - TONGUE DISCOLOURATION [None]
  - TOOTH DISCOLOURATION [None]
